FAERS Safety Report 6961442-3 (Version None)
Quarter: 2010Q3

REPORT INFORMATION
  Report Type: 
  Country: None (occurrence: None)
  Receive Date: 20100901
  Receipt Date: 20100824
  Transmission Date: 20110219
  Serious: Yes (Other)
  Sender: FDA-Public Use
  Company Number: US-PFIZER INC-2010109308

PATIENT
  Sex: Male
  Weight: 113.38 kg

DRUGS (10)
  1. TOVIAZ [Suspect]
     Indication: BLADDER DISORDER
     Dosage: 8 MG, DAILY
     Dates: start: 20100801
  2. XANAX [Interacting]
     Dosage: 1 MG, DAILY
  3. NORVASC [Interacting]
     Dosage: 10 MG, DAILY
  4. CARDURA [Interacting]
     Dosage: 2 MG, NIGHTLY
  5. HYDROCHLOROTHIAZIDE [Interacting]
     Dosage: 25 MG, DAILY
  6. PRISTIQ [Interacting]
     Indication: DEPRESSION
     Dosage: 50 MG, DAILY
     Route: 048
     Dates: start: 20100804
  7. MICARDIS [Interacting]
     Dosage: 80 MG, UNK
  8. ACETYLSALICYLIC ACID [Interacting]
     Dosage: 81 MG, UNK
  9. NEBIVOLOL [Interacting]
     Dosage: 5 MG, UNK
  10. NORCO [Interacting]
     Indication: PAIN
     Dosage: UNK MG, UNK

REACTIONS (6)
  - BLADDER DISORDER [None]
  - DRUG INEFFECTIVE [None]
  - DRUG INTERACTION [None]
  - DRY MOUTH [None]
  - DYSPHAGIA [None]
  - VISION BLURRED [None]
